FAERS Safety Report 11371675 (Version 1)
Quarter: 2015Q3

REPORT INFORMATION
  Report Type: Spontaneous
  Country: US (occurrence: US)
  Receive Date: 20150812
  Receipt Date: 20150812
  Transmission Date: 20151125
  Serious: Yes (Hospitalization)
  Sender: FDA-Public Use
  Company Number: US-JNJFOC-20150802388

PATIENT
  Sex: Female
  Weight: 57.61 kg

DRUGS (2)
  1. RISPERIDONE. [Suspect]
     Active Substance: RISPERIDONE
     Indication: READING DISORDER
     Route: 048
  2. RISPERIDONE. [Suspect]
     Active Substance: RISPERIDONE
     Indication: MENTAL IMPAIRMENT
     Route: 048

REACTIONS (9)
  - Confusional state [Recovered/Resolved]
  - Disturbance in social behaviour [Recovered/Resolved]
  - Insomnia [Recovered/Resolved]
  - Weight decreased [Recovered/Resolved]
  - Product use issue [Unknown]
  - Drug dose omission [Recovered/Resolved]
  - Eating disorder [Recovered/Resolved]
  - Thinking abnormal [Recovered/Resolved]
  - Depressed mood [Recovered/Resolved]
